FAERS Safety Report 19309494 (Version 2)
Quarter: 2021Q2

REPORT INFORMATION
  Report Type: Report from Study
  Country: JP (occurrence: JP)
  Receive Date: 20210526
  Receipt Date: 20210616
  Transmission Date: 20210717
  Serious: Yes (Hospitalization, Other)
  Sender: FDA-Public Use
  Company Number: JP-INCYTE CORPORATION-2021IN004639

PATIENT

DRUGS (9)
  1. JAKAVI [Suspect]
     Active Substance: RUXOLITINIB
     Indication: POLYCYTHAEMIA VERA
     Dosage: 20 MG
     Route: 048
     Dates: start: 20170614, end: 20170620
  2. JAKAVI [Suspect]
     Active Substance: RUXOLITINIB
     Dosage: 15 MG
     Route: 048
     Dates: start: 20171031, end: 20171114
  3. JAKAVI [Suspect]
     Active Substance: RUXOLITINIB
     Dosage: 10 MG
     Route: 048
     Dates: start: 20171114, end: 20171121
  4. CYMERIN [Suspect]
     Active Substance: RANIMUSTINE
     Indication: POLYCYTHAEMIA VERA
     Dosage: 100 MG
     Route: 065
     Dates: start: 20170606, end: 20170617
  5. JAKAVI [Suspect]
     Active Substance: RUXOLITINIB
     Dosage: 20 MG/DAY/IN TWO DIVIDED DOSES
     Route: 048
     Dates: start: 20171205
  6. JAKAVI [Suspect]
     Active Substance: RUXOLITINIB
     Dosage: 10 MG
     Route: 048
     Dates: start: 20171010, end: 20171024
  7. JAKAVI [Suspect]
     Active Substance: RUXOLITINIB
     Dosage: 20 MG
     Route: 048
     Dates: start: 20171024, end: 20171031
  8. JAKAVI [Suspect]
     Active Substance: RUXOLITINIB
     Dosage: 15 MG
     Route: 048
     Dates: start: 20171121, end: 20171205
  9. JAKAVI [Suspect]
     Active Substance: RUXOLITINIB
     Dosage: 30 MG
     Route: 048
     Dates: start: 20170620, end: 20170704

REACTIONS (2)
  - Myelosuppression [Recovered/Resolved]
  - Heavy menstrual bleeding [Recovering/Resolving]

NARRATIVE: CASE EVENT DATE: 20170704
